FAERS Safety Report 5122092-7 (Version None)
Quarter: 2006Q4

REPORT INFORMATION
  Report Type: 
  Country: None (occurrence: None)
  Receive Date: 20061004
  Receipt Date: 20061004
  Transmission Date: 20070319
  Serious: Yes (Disabling)
  Sender: FDA-Public Use
  Company Number: None

PATIENT
  Age: 37 Year
  Sex: Female
  Weight: 61.2356 kg

DRUGS (1)
  1. DEPAKOTE ER [Suspect]
     Indication: BIPOLAR DISORDER
     Dosage: -3- 500MG TOTAL   2 500MG  DAILY  PO
     Route: 048
     Dates: start: 20040821, end: 20060131

REACTIONS (1)
  - DEAFNESS [None]
